FAERS Safety Report 23896876 (Version 1)
Quarter: 2024Q2

REPORT INFORMATION
  Report Type: Spontaneous
  Country: AU (occurrence: None)
  Receive Date: 20240524
  Receipt Date: 20240524
  Transmission Date: 20240715
  Serious: Yes (Hospitalization, Other)
  Sender: FDA-Public Use
  Company Number: 2024A115615

PATIENT
  Age: 50 Year
  Sex: Male

DRUGS (6)
  1. DAPAGLIFLOZIN PROPANEDIOL [Suspect]
     Active Substance: DAPAGLIFLOZIN PROPANEDIOL
     Dates: start: 20240403
  2. SEMAGLUTIDE [Concomitant]
     Active Substance: SEMAGLUTIDE
  3. DESVENLAFAXINE [Concomitant]
     Active Substance: DESVENLAFAXINE
  4. GLICLAZIDE [Concomitant]
     Active Substance: GLICLAZIDE
  5. PERINDOPRIL [Concomitant]
     Active Substance: PERINDOPRIL
  6. JANUMET [Concomitant]
     Active Substance: METFORMIN HYDROCHLORIDE\SITAGLIPTIN PHOSPHATE

REACTIONS (2)
  - Pancreatitis [Recovering/Resolving]
  - Euglycaemic diabetic ketoacidosis [Unknown]

NARRATIVE: CASE EVENT DATE: 20240405
